FAERS Safety Report 25840711 (Version 1)
Quarter: 2025Q3

REPORT INFORMATION
  Report Type: Spontaneous
  Country: US (occurrence: None)
  Receive Date: 20250923
  Receipt Date: 20250923
  Transmission Date: 20251020
  Serious: Yes (Hospitalization)
  Sender: FDA-CTU
  Company Number: None

PATIENT
  Age: 77 Year
  Sex: Male

DRUGS (1)
  1. NILOTINIB [Suspect]
     Active Substance: NILOTINIB
     Dosage: FREQUENCY : TWICE A DAY;?

REACTIONS (10)
  - Myocardial infarction [None]
  - Deep vein thrombosis [None]
  - Arterial stenosis [None]
  - Vomiting [None]
  - Arthritis [None]
  - Movement disorder [None]
  - Rotator cuff syndrome [None]
  - Haemoglobin decreased [None]
  - Joint swelling [None]
  - Peripheral swelling [None]
